FAERS Safety Report 21789349 (Version 2)
Quarter: 2023Q1

REPORT INFORMATION
  Report Type: Report from Study
  Country: US (occurrence: US)
  Receive Date: 20221228
  Receipt Date: 20230130
  Transmission Date: 20230418
  Serious: Yes (Hospitalization)
  Sender: FDA-Public Use
  Company Number: US-JNJFOC-20221160680

PATIENT
  Age: 44 Year
  Sex: Female
  Weight: 110.1 kg

DRUGS (4)
  1. EPOPROSTENOL SODIUM [Suspect]
     Active Substance: EPOPROSTENOL SODIUM
     Indication: Pulmonary arterial hypertension
     Route: 042
     Dates: start: 20221109
  2. EPOPROSTENOL SODIUM [Suspect]
     Active Substance: EPOPROSTENOL SODIUM
     Indication: Pulmonary arterial hypertension
  3. OPSUMIT [Concomitant]
     Active Substance: MACITENTAN
     Route: 065
  4. TADALAFIL [Concomitant]
     Active Substance: TADALAFIL

REACTIONS (6)
  - Central venous catheterisation [Recovered/Resolved]
  - Migraine [Recovered/Resolved]
  - Periorbital swelling [Recovered/Resolved]
  - Diarrhoea [Recovered/Resolved]
  - Decreased appetite [Recovered/Resolved]
  - Product administration interrupted [Unknown]
